FAERS Safety Report 12880264 (Version 1)
Quarter: 2016Q4

REPORT INFORMATION
  Report Type: Spontaneous
  Country: US (occurrence: US)
  Receive Date: 20161025
  Receipt Date: 20161025
  Transmission Date: 20170207
  Serious: Yes (Hospitalization, Other)
  Sender: FDA-Public Use
  Company Number: PHEH2016US027032

PATIENT
  Age: 78 Year
  Sex: Female

DRUGS (1)
  1. AFINITOR [Suspect]
     Active Substance: EVEROLIMUS
     Indication: NEUROENDOCRINE TUMOUR
     Dosage: 10 MG, QD
     Route: 048

REACTIONS (6)
  - Pneumonitis [Recovering/Resolving]
  - Malignant neoplasm progression [Unknown]
  - Dyspnoea [Unknown]
  - Right ventricular failure [Unknown]
  - Hypoxia [Unknown]
  - Carcinoid heart disease [Unknown]

NARRATIVE: CASE EVENT DATE: 20160910
